FAERS Safety Report 7015081-9 (Version None)
Quarter: 2010Q3

REPORT INFORMATION
  Report Type: 
  Country: None (occurrence: None)
  Receive Date: 20100927
  Receipt Date: 20100923
  Transmission Date: 20110219
  Serious: Yes (Life-Threatening)
  Sender: FDA-Public Use
  Company Number: US-ASTRAZENECA-2010SE44867

PATIENT
  Age: 63 Year
  Sex: Female
  Weight: 59.9 kg

DRUGS (24)
  1. NEXIUM [Suspect]
     Indication: GASTROOESOPHAGEAL REFLUX DISEASE
     Route: 048
     Dates: start: 20010101
  2. PRILOSEC [Suspect]
     Indication: GASTROOESOPHAGEAL REFLUX DISEASE
     Dosage: DAILY
     Route: 048
  3. PULMICORT RESPULES [Concomitant]
     Route: 055
  4. MESTINON [Concomitant]
     Indication: MYASTHENIA GRAVIS
  5. MESTINON [Concomitant]
  6. ACTONEL [Concomitant]
     Dosage: 35 MG DAILY, DOSE FREQUENCY WEEK
  7. OXYCONTIN [Concomitant]
     Indication: PAIN
  8. OXYCONTIN [Concomitant]
  9. LIDODERM [Concomitant]
     Dosage: DAILY
  10. IMITREX [Concomitant]
     Indication: MIGRAINE
     Dosage: PRN
  11. SINGULAIR [Concomitant]
  12. ALOVERT [Concomitant]
     Indication: HYPERSENSITIVITY
  13. FLONASE [Concomitant]
     Dosage: PRN
  14. MOTRIN [Concomitant]
  15. ZETIA [Concomitant]
  16. EFFEXOR D [Concomitant]
  17. XANAX [Concomitant]
     Indication: ANXIETY
  18. RITALIN [Concomitant]
     Indication: NERVOUSNESS
  19. PERCOCET [Concomitant]
     Dosage: PRN
  20. CLONIDINE [Concomitant]
     Indication: HYPERHIDROSIS
  21. DUOBEBS [Concomitant]
  22. CENTRUM [Concomitant]
  23. VIT B [Concomitant]
  24. FISH OILS [Concomitant]

REACTIONS (7)
  - ARTHRITIS [None]
  - BREAST CANCER [None]
  - BRONCHITIS [None]
  - LUNG NEOPLASM MALIGNANT [None]
  - MENSTRUAL DISORDER [None]
  - OSTEOPOROSIS [None]
  - SLEEP DISORDER [None]
